FAERS Safety Report 4661499-9 (Version None)
Quarter: 2005Q2

REPORT INFORMATION
  Report Type: 
  Country: None (occurrence: None)
  Receive Date: 20050512
  Receipt Date: 20050512
  Transmission Date: 20051028
  Serious: No
  Sender: FDA-Public Use
  Company Number: None

PATIENT
  Sex: Male
  Weight: 92.0802 kg

DRUGS (6)
  1. CLOZAPINE [Suspect]
     Indication: SCHIZOPHRENIA, PARANOID TYPE
     Dosage: 100 MG   BID   ORAL
     Route: 048
     Dates: start: 20050401, end: 20050425
  2. CLOZAPINE [Suspect]
     Dosage: 50 MG   QAM   ORAL
     Route: 048
     Dates: start: 20050422, end: 20050425
  3. BENZTROPINE [Concomitant]
  4. GUANFACINE HCL [Concomitant]
  5. RISPERIDONE M [Concomitant]
  6. CLOTRIMAZOLE CREAM 1% [Concomitant]

REACTIONS (1)
  - NEUTROPHIL COUNT DECREASED [None]
